FAERS Safety Report 17052394 (Version 1)
Quarter: 2019Q4

REPORT INFORMATION
  Report Type: Spontaneous
  Country: US (occurrence: US)
  Receive Date: 20191119
  Receipt Date: 20191119
  Transmission Date: 20200122
  Serious: Yes (Other)
  Sender: FDA-Public Use
  Company Number: None

PATIENT
  Age: 46 Year
  Sex: Female
  Weight: 62.1 kg

DRUGS (1)
  1. AIMOVIG [Suspect]
     Active Substance: ERENUMAB-AOOE
     Indication: MIGRAINE
     Dosage: ?          QUANTITY:2 INJECTION(S);OTHER FREQUENCY:MONTHLY;OTHER ROUTE:INJECTION?
     Dates: start: 20190910, end: 20191014

REACTIONS (6)
  - Depression [None]
  - Myalgia [None]
  - Fatigue [None]
  - Visual acuity reduced [None]
  - Muscle spasms [None]
  - Self-injurious ideation [None]

NARRATIVE: CASE EVENT DATE: 20190915
